FAERS Safety Report 4354624-0 (Version None)
Quarter: 2004Q2

REPORT INFORMATION
  Report Type: 
  Country: None (occurrence: None)
  Receive Date: 20040506
  Receipt Date: 20040506
  Transmission Date: 20050107
  Serious: Yes (Life-Threatening, Hospitalization)
  Sender: FDA-Public Use
  Company Number: None

PATIENT
  Sex: Male
  Weight: 11 kg

DRUGS (14)
  1. DAUNOMYCIN [Suspect]
     Indication: ACUTE MYELOID LEUKAEMIA
     Dosage: 25 MG IV OVER 6 HRS ON DAY 2,4 AND 6
     Route: 042
     Dates: start: 20040411
  2. DAUNOMYCIN [Suspect]
     Indication: ACUTE MYELOID LEUKAEMIA
     Dosage: 25 MG IV OVER 6 HRS ON DAY 2,4 AND 6
     Route: 042
     Dates: start: 20040413
  3. DAUNOMYCIN [Suspect]
     Indication: ACUTE MYELOID LEUKAEMIA
     Dosage: 25 MG IV OVER 6 HRS ON DAY 2,4 AND 6
     Route: 042
     Dates: start: 20040415
  4. ARA-C [Concomitant]
  5. ETOPOSIDE [Concomitant]
  6. BACTRIM [Concomitant]
  7. VORICONAZOLE [Concomitant]
  8. PERIDEX [Concomitant]
  9. CEFAPIME [Concomitant]
  10. ABELCET [Concomitant]
  11. FLAGYL [Concomitant]
  12. VANCOMYCIN [Concomitant]
  13. NA HC03 [Concomitant]
  14. TPN [Concomitant]

REACTIONS (11)
  - ABDOMINAL DISTENSION [None]
  - GASTROINTESTINAL MUCOSITIS [None]
  - HEART RATE INCREASED [None]
  - HEPATOMEGALY [None]
  - NEUTROPENIA [None]
  - PYREXIA [None]
  - RENAL DISORDER [None]
  - RESPIRATORY DISTRESS [None]
  - RESPIRATORY RATE INCREASED [None]
  - ULTRASOUND SCAN ABNORMAL [None]
  - VENTRICULAR DYSFUNCTION [None]
